FAERS Safety Report 8209913-6 (Version None)
Quarter: 2012Q1

REPORT INFORMATION
  Report Type: 
  Country: None (occurrence: None)
  Receive Date: 20120314
  Receipt Date: 20120308
  Transmission Date: 20120608
  Serious: Yes (Hospitalization, Other)
  Sender: FDA-Public Use
  Company Number: US-ABBOTT-12P-163-0913435-00

PATIENT
  Sex: Female
  Weight: 104.42 kg

DRUGS (10)
  1. PRAVASTATIN [Concomitant]
     Indication: PRODUCT USED FOR UNKNOWN INDICATION
  2. REMERON [Concomitant]
     Indication: PRODUCT USED FOR UNKNOWN INDICATION
  3. ACTIVELLA [Concomitant]
     Indication: HORMONE THERAPY
  4. ANTIVERT [Concomitant]
     Indication: VOMITING
  5. LUPRON DEPOT [Suspect]
     Indication: ABDOMINAL PAIN LOWER
     Dosage: ONE INJECTION
     Route: 050
     Dates: start: 20111208, end: 20111208
  6. LUPRON DEPOT [Suspect]
     Indication: REPRODUCTIVE TRACT DISORDER
  7. LUPRON DEPOT [Suspect]
     Indication: REPRODUCTIVE TRACT DISORDER
  8. LISINOPRIL/HYDROCHLOORTHIAZIDE [Concomitant]
     Indication: PRODUCT USED FOR UNKNOWN INDICATION
  9. LUPRON DEPOT [Suspect]
     Indication: ABDOMINAL PAIN LOWER
     Dosage: ONE INJECTION, 1ST INJECTION
     Dates: start: 20111109, end: 20111109
  10. ANTIVERT [Concomitant]
     Indication: NAUSEA

REACTIONS (2)
  - DRUG INEFFECTIVE [None]
  - CYCLIC VOMITING SYNDROME [None]
